FAERS Safety Report 7560482-3 (Version None)
Quarter: 2011Q2

REPORT INFORMATION
  Report Type: 
  Country: None (occurrence: None)
  Receive Date: 20110621
  Receipt Date: 20110615
  Transmission Date: 20111010
  Serious: No
  Sender: FDA-Public Use
  Company Number: US-TEVA-286995USA

PATIENT
  Sex: Female
  Weight: 117.13 kg

DRUGS (4)
  1. CELEXA [Concomitant]
     Indication: ANXIETY
  2. ALDEMAX [Concomitant]
     Indication: HYPERTENSION
  3. PLAN B ONE-STEP [Suspect]
     Indication: POST COITAL CONTRACEPTION
     Dosage: 1.5 MILLIGRAM;
     Route: 048
     Dates: start: 20110615, end: 20110615
  4. MIRENA [Concomitant]
     Indication: CONTRACEPTION
     Route: 015

REACTIONS (1)
  - HEADACHE [None]
